FAERS Safety Report 6838044-2 (Version None)
Quarter: 2010Q3

REPORT INFORMATION
  Report Type: 
  Country: None (occurrence: None)
  Receive Date: 20100713
  Receipt Date: 20070530
  Transmission Date: 20110219
  Serious: No
  Sender: FDA-Public Use
  Company Number: US-PFIZER INC-2007045783

PATIENT
  Sex: Male
  Weight: 109.09 kg

DRUGS (3)
  1. CHANTIX [Suspect]
     Indication: SMOKING CESSATION THERAPY
     Route: 048
     Dates: start: 20070101
  2. LOTREL [Concomitant]
     Indication: HYPERTENSION
  3. IBUPROFEN [Concomitant]
     Indication: ARTHRITIS

REACTIONS (4)
  - DEPENDENCE [None]
  - HOSTILITY [None]
  - IRRITABILITY [None]
  - NAUSEA [None]
